FAERS Safety Report 8445435-5 (Version None)
Quarter: 2012Q2

REPORT INFORMATION
  Report Type: 
  Country: None (occurrence: None)
  Receive Date: 20120618
  Receipt Date: 20120611
  Transmission Date: 20120825
  Serious: Yes (Other)
  Sender: FDA-Public Use
  Company Number: US-CELGENEUS-163-21880-12061786

PATIENT
  Sex: Female
  Weight: 68.1 kg

DRUGS (4)
  1. LEVOXYL [Concomitant]
     Dosage: 112 MICROGRAM
     Route: 065
  2. VITAMIN D [Concomitant]
     Dosage: 112 MICROGRAM
     Route: 065
  3. REVLIMID [Suspect]
     Dosage: 5 MILLIGRAM
     Route: 048
     Dates: start: 20100401
  4. VITAMIN TAB [Concomitant]
     Dosage: 112 MICROGRAM
     Route: 065

REACTIONS (2)
  - THYROID CANCER [None]
  - THYROID FUNCTION TEST ABNORMAL [None]
